FAERS Safety Report 24694948 (Version 1)
Quarter: 2024Q4

REPORT INFORMATION
  Report Type: Spontaneous
  Country: US (occurrence: None)
  Receive Date: 20241203
  Receipt Date: 20241203
  Transmission Date: 20250114
  Serious: Yes (Hospitalization)
  Sender: Public
  Company Number: None

PATIENT
  Age: 45 Year
  Sex: Male

DRUGS (2)
  1. TEMOZOLOMIDE [Suspect]
     Active Substance: TEMOZOLOMIDE
     Indication: Malignant melanoma
     Dosage: OTHER FREQUENCY : 1TIMEADAYFOR28DAYCYCLE ;?
     Route: 048
     Dates: start: 202410
  2. TEMOZOLOMIDE [Suspect]
     Active Substance: TEMOZOLOMIDE
     Indication: Malignant melanoma
     Dates: start: 202411

REACTIONS (6)
  - Pyrexia [None]
  - Confusional state [None]
  - Nausea [None]
  - Vomiting [None]
  - Hypoaesthesia [None]
  - Aphasia [None]

NARRATIVE: CASE EVENT DATE: 20241114
